FAERS Safety Report 15762765 (Version 2)
Quarter: 2019Q1

REPORT INFORMATION
  Report Type: Report from Study
  Country: CA (occurrence: CA)
  Receive Date: 20181226
  Receipt Date: 20190328
  Transmission Date: 20190417
  Serious: Yes (Other)
  Sender: FDA-Public Use
  Company Number: PHHY2018CA062339

PATIENT
  Sex: Female

DRUGS (2)
  1. JADENU [Suspect]
     Active Substance: DEFERASIROX
     Indication: MYELODYSPLASTIC SYNDROME
     Dosage: 450 MG, QD (STRENGTH: 360 MG AND 90 MG)
     Route: 048
     Dates: start: 201807
  2. JADENU [Suspect]
     Active Substance: DEFERASIROX
     Dosage: 360 MG, BID
     Route: 048

REACTIONS (5)
  - Insomnia [Unknown]
  - Abdominal discomfort [Unknown]
  - Constipation [Unknown]
  - Inappropriate schedule of product administration [Unknown]
  - Renal impairment [Not Recovered/Not Resolved]
